FAERS Safety Report 14683901 (Version 1)
Quarter: 2018Q1

REPORT INFORMATION
  Report Type: Spontaneous
  Country: IT (occurrence: IT)
  Receive Date: 20180327
  Receipt Date: 20180327
  Transmission Date: 20180509
  Serious: Yes (Hospitalization)
  Sender: FDA-Public Use
  Company Number: IT-BAYER-2018-051393

PATIENT
  Age: 79 Year
  Sex: Female

DRUGS (9)
  1. RIVASTIGMINE. [Concomitant]
     Active Substance: RIVASTIGMINE
  2. CLOPIDOGREL [Concomitant]
     Active Substance: CLOPIDOGREL BISULFATE
  3. SERTRALINE [Concomitant]
     Active Substance: SERTRALINE HYDROCHLORIDE
  4. CIPROXIN 500 MG [Suspect]
     Active Substance: CIPROFLOXACIN
     Indication: BRONCHITIS
     Route: 048
     Dates: start: 20180103, end: 20180109
  5. LASIX [Concomitant]
     Active Substance: FUROSEMIDE
  6. TAMOXIFEN CITRATE. [Concomitant]
     Active Substance: TAMOXIFEN CITRATE
  7. XANAX [Concomitant]
     Active Substance: ALPRAZOLAM
  8. METFORMIN [Concomitant]
     Active Substance: METFORMIN HYDROCHLORIDE
  9. PEPTAZOL [Concomitant]
     Active Substance: PANTOPRAZOLE SODIUM

REACTIONS (3)
  - Diarrhoea [Unknown]
  - Dehydration [Unknown]
  - Decreased appetite [Unknown]

NARRATIVE: CASE EVENT DATE: 20180104
